FAERS Safety Report 4479940-3 (Version None)
Quarter: 2004Q3

REPORT INFORMATION
  Report Type: 
  Country: None (occurrence: None)
  Receive Date: 20040923
  Receipt Date: 20040806
  Transmission Date: 20050211
  Serious: No
  Sender: FDA-Public Use
  Company Number: USA040669111

PATIENT
  Age: 74 Year
  Sex: Female
  Weight: 61 kg

DRUGS (2)
  1. FORTEO [Suspect]
     Indication: OSTEOPOROSIS
     Dosage: 20 UG DAY
     Dates: start: 20031119
  2. PROGESTERONE W/ESTROGENS [Concomitant]

REACTIONS (8)
  - ASTHENIA [None]
  - BASEDOW'S DISEASE [None]
  - CRYING [None]
  - FATIGUE [None]
  - HEART RATE INCREASED [None]
  - HYPERTHYROIDISM [None]
  - INCREASED APPETITE [None]
  - NERVOUSNESS [None]
